FAERS Safety Report 7433248-2 (Version None)
Quarter: 2011Q2

REPORT INFORMATION
  Report Type: 
  Country: None (occurrence: None)
  Receive Date: 20110422
  Receipt Date: 20110415
  Transmission Date: 20111010
  Serious: Yes (Other)
  Sender: FDA-Public Use
  Company Number: CHPA2011US05673

PATIENT
  Sex: Female
  Weight: 82.54 kg

DRUGS (3)
  1. BUCKLEY'S CHEST CONGESTION [Suspect]
     Indication: COUGH
     Dosage: UNK, UNK
     Route: 048
     Dates: start: 20110415
  2. CIPROFLOXACIN [Concomitant]
     Indication: FOOD POISONING
     Dosage: UNK, UNK
     Route: 048
     Dates: start: 20110412
  3. DIOVAN [Concomitant]
     Indication: HYPERTENSION
     Dosage: UNK, UNK
     Route: 048

REACTIONS (2)
  - HYPERTENSION [None]
  - EAR DISCOMFORT [None]
